FAERS Safety Report 13982352 (Version 2)
Quarter: 2017Q3

REPORT INFORMATION
  Report Type: Report from Study
  Country: US (occurrence: US)
  Receive Date: 20170918
  Receipt Date: 20170928
  Transmission Date: 20171128
  Serious: Yes (Hospitalization, Other)
  Sender: FDA-Public Use
  Company Number: US-BAYER-2017-150026

PATIENT
  Age: 32 Year
  Sex: Male

DRUGS (13)
  1. GABAPENTIN. [Concomitant]
     Active Substance: GABAPENTIN
  2. VITAMIN B6 [Concomitant]
     Active Substance: PYRIDOXINE HYDROCHLORIDE
  3. STIVARGA [Suspect]
     Active Substance: REGORAFENIB
     Indication: RECTAL CANCER
     Dosage: DAILY DOSE 160 MG
     Route: 048
     Dates: start: 20170727, end: 2017
  4. STIVARGA [Suspect]
     Active Substance: REGORAFENIB
     Indication: METASTASES TO RETROPERITONEUM
  5. DEXAMETHASONE. [Concomitant]
     Active Substance: DEXAMETHASONE
     Dosage: 2 MG, BID
  6. ONDANSETRON [Concomitant]
     Active Substance: ONDANSETRON
  7. OXYCODONE HYDROCHLORIDE. [Concomitant]
     Active Substance: OXYCODONE HYDROCHLORIDE
  8. RANITIDINE. [Concomitant]
     Active Substance: RANITIDINE
  9. STIVARGA [Suspect]
     Active Substance: REGORAFENIB
     Indication: METASTASES TO BONE
     Dosage: DAILY DOSE 160 MG
     Route: 048
     Dates: start: 20170826
  10. STIVARGA [Suspect]
     Active Substance: REGORAFENIB
     Indication: METASTASES TO PERITONEUM
  11. CYCLOBENZAPRINE HYDROCHLORIDE. [Concomitant]
     Active Substance: CYCLOBENZAPRINE HYDROCHLORIDE
  12. MORPHINE SULFATE. [Concomitant]
     Active Substance: MORPHINE SULFATE
  13. PROCHLORPERAZINE MALEATE. [Concomitant]
     Active Substance: PROCHLORPERAZINE MALEATE

REACTIONS (26)
  - Skin burning sensation [None]
  - Pain in extremity [None]
  - Chest pain [None]
  - Erythema [None]
  - Arthralgia [Not Recovered/Not Resolved]
  - Abdominal pain upper [None]
  - Nausea [None]
  - Skin discolouration [None]
  - Skin fissures [None]
  - Pelvic pain [None]
  - Hepatotoxicity [None]
  - Dyspepsia [None]
  - Rash [None]
  - Tremor [None]
  - Liver injury [None]
  - Skin discolouration [None]
  - Walking aid user [None]
  - Pain in extremity [None]
  - Tongue ulceration [None]
  - Erythema [None]
  - Pain in extremity [Recovering/Resolving]
  - White blood cell count increased [None]
  - Skin exfoliation [None]
  - Nephropathy toxic [None]
  - Pain in extremity [Not Recovered/Not Resolved]
  - Skin fissures [None]

NARRATIVE: CASE EVENT DATE: 2017
